FAERS Safety Report 7117381-0 (Version None)
Quarter: 2010Q4

REPORT INFORMATION
  Report Type: 
  Country: None (occurrence: None)
  Receive Date: 20101122
  Receipt Date: 20101118
  Transmission Date: 20110411
  Serious: Yes (Other)
  Sender: FDA-Public Use
  Company Number: JP-PFIZER INC-2010137631

PATIENT
  Age: 26 Year
  Sex: Male
  Weight: 77 kg

DRUGS (7)
  1. CHAMPIX [Suspect]
     Indication: SMOKING CESSATION THERAPY
     Dosage: 0.5 MG, 1X/DAY
     Route: 048
     Dates: start: 20101002, end: 20101004
  2. CHAMPIX [Suspect]
     Dosage: 1 MG, 2X/DAY
     Route: 048
     Dates: start: 20101005, end: 20101008
  3. CHAMPIX [Suspect]
     Dosage: 2 MG, 2X/DAY
     Route: 048
     Dates: start: 20101009, end: 20101014
  4. CHAMPIX [Suspect]
     Dosage: 2 MG, 1X/DAY
     Dates: start: 20101023
  5. CHAMPIX [Suspect]
     Dosage: 1 MG, 1X/DAY
     Route: 048
     Dates: start: 20101015, end: 20101016
  6. CAFFEINE/PARACETAMOL/PROMETHAZINE METHYLENE DISALICYLATE/SALICYLAMIDE [Suspect]
     Indication: RHINORRHOEA
     Dosage: 8 UNK, 4X/DAY
     Dates: start: 20101002, end: 20101005
  7. CAFFEINE/PARACETAMOL/PROMETHAZINE METHYLENE DISALICYLATE/SALICYLAMIDE [Suspect]
     Indication: MALAISE

REACTIONS (9)
  - ASTHENIA [None]
  - BRONCHITIS [None]
  - DECREASED APPETITE [None]
  - HEPATIC FUNCTION ABNORMAL [None]
  - LISTLESS [None]
  - MALAISE [None]
  - MYCOPLASMA INFECTION [None]
  - PYREXIA [None]
  - SEASONAL ALLERGY [None]
